FAERS Safety Report 18754247 (Version 1)
Quarter: 2021Q1

REPORT INFORMATION
  Report Type: Spontaneous
  Country: US (occurrence: US)
  Receive Date: 20210119
  Receipt Date: 20210119
  Transmission Date: 20210419
  Serious: Yes (Other)
  Sender: FDA-Public Use
  Company Number: US-ALKEM LABORATORIES LIMITED-US-ALKEM-2021-00065

PATIENT
  Age: 19 Month
  Sex: Female

DRUGS (2)
  1. AMPHETAMINE SULFATE. [Suspect]
     Active Substance: AMPHETAMINE SULFATE
     Indication: PRODUCT USED FOR UNKNOWN INDICATION
     Dosage: UNK
     Route: 065
  2. METHAMPHETAMINE [Suspect]
     Active Substance: METHAMPHETAMINE
     Indication: PRODUCT USED FOR UNKNOWN INDICATION
     Dosage: UNK
     Route: 065

REACTIONS (9)
  - Metabolic acidosis [Unknown]
  - Unresponsive to stimuli [Unknown]
  - Cardiac arrest [Unknown]
  - Drug level increased [Unknown]
  - Respiratory acidosis [Unknown]
  - Hyperglycaemia [Unknown]
  - Seizure like phenomena [Unknown]
  - Pulseless electrical activity [Unknown]
  - Multi-organ disorder [Unknown]
